FAERS Safety Report 5028576-4 (Version None)
Quarter: 2006Q2

REPORT INFORMATION
  Report Type: 
  Country: None (occurrence: None)
  Receive Date: 20060616
  Receipt Date: 20060616
  Transmission Date: 20061013
  Serious: Yes (Other)
  Sender: FDA-Public Use
  Company Number: None

PATIENT
  Age: 18 Year
  Sex: Female
  Weight: 60.2 kg

DRUGS (6)
  1. REMICADE [Suspect]
     Indication: CROHN'S DISEASE
     Dosage: 325 MG IV EVERY 2 WKS
     Route: 042
     Dates: start: 20060426
  2. 6 MP [Suspect]
     Indication: AUTOIMMUNE HEPATITIS
     Dosage: 75 MG ORALLY QHS
     Route: 048
     Dates: start: 20030407
  3. 6 MP [Suspect]
     Indication: CROHN'S DISEASE
     Dosage: 75 MG ORALLY QHS
     Route: 048
     Dates: start: 20030407
  4. ASACOL [Concomitant]
  5. IMITREX [Concomitant]
  6. PRILOSEC [Concomitant]

REACTIONS (2)
  - DRUG EXPOSURE DURING PREGNANCY [None]
  - PREGNANCY ON ORAL CONTRACEPTIVE [None]
